FAERS Safety Report 8935773 (Version 4)
Quarter: 2013Q4

REPORT INFORMATION
  Report Type: Spontaneous
  Country: GB (occurrence: GB)
  Receive Date: 20121130
  Receipt Date: 20131011
  Transmission Date: 20140711
  Serious: Yes (Other)
  Sender: FDA-Public Use
  Company Number: GB-BRISTOL-MYERS SQUIBB COMPANY-17157546

PATIENT
  Age: 70 Year
  Sex: Female
  Weight: 72 kg

DRUGS (22)
  1. METFORMIN HCL [Suspect]
     Indication: TYPE 2 DIABETES MELLITUS
  2. IBUPROFEN [Suspect]
     Indication: DYSMENORRHOEA
  3. IBUPROFEN [Suspect]
     Indication: RHEUMATOID ARTHRITIS
  4. IBUPROFEN [Suspect]
     Indication: PYREXIA
  5. IBUPROFEN [Suspect]
     Indication: PAIN
  6. IBUPROFEN [Suspect]
     Indication: PATENT DUCTUS ARTERIOSUS
  7. IBUPROFEN [Suspect]
     Indication: PERICARDITIS
  8. ATORVASTATIN [Suspect]
     Indication: DYSLIPIDAEMIA
  9. ATORVASTATIN [Suspect]
     Indication: PROPHYLAXIS
  10. CARBAMAZEPINE [Suspect]
     Indication: NEURALGIA
  11. CARBAMAZEPINE [Suspect]
     Indication: CONVULSION
  12. CARBAMAZEPINE [Suspect]
     Indication: ANALGESIC THERAPY
  13. GLYCERYL TRINITRATE [Suspect]
     Indication: ISCHAEMIC HEART DISEASE PROPHYLAXIS
     Route: 060
  14. LANSOPRAZOLE [Suspect]
     Indication: DUODENAL ULCER
  15. LANSOPRAZOLE [Suspect]
     Indication: GASTRIC ULCER
  16. LANSOPRAZOLE [Suspect]
     Indication: GASTROOESOPHAGEAL REFLUX DISEASE
  17. LANSOPRAZOLE [Suspect]
     Indication: ULCER
  18. LANSOPRAZOLE [Suspect]
     Indication: GASTRINOMA
  19. LOPERAMIDE [Suspect]
     Indication: GASTRINOMA
  20. LOPERAMIDE [Suspect]
     Indication: DIARRHOEA
  21. LOPERAMIDE [Suspect]
     Indication: FUNCTIONAL GASTROINTESTINAL DISORDER
  22. ISOSORBIDE MONONITRATE [Suspect]
     Indication: ISCHAEMIC HEART DISEASE PROPHYLAXIS

REACTIONS (1)
  - Colitis microscopic [Not Recovered/Not Resolved]
